FAERS Safety Report 9343424 (Version 1)
Quarter: 2013Q2

REPORT INFORMATION
  Report Type: Spontaneous
  Country: US (occurrence: US)
  Receive Date: 20130612
  Receipt Date: 20130612
  Transmission Date: 20140414
  Serious: No
  Sender: FDA-Public Use
  Company Number: US-BIOGENIDEC-2013BI051522

PATIENT
  Age: 37 Year
  Sex: Female

DRUGS (1)
  1. TYSABRI [Suspect]
     Indication: CROHN^S DISEASE
     Route: 042
     Dates: start: 20130131, end: 20130411

REACTIONS (5)
  - Fall [Recovered/Resolved]
  - Concussion [Unknown]
  - Balance disorder [Unknown]
  - Post-traumatic headache [Unknown]
  - Dizziness [Unknown]
